FAERS Safety Report 16050349 (Version 1)
Quarter: 2019Q1

REPORT INFORMATION
  Report Type: Report from Study
  Country: US (occurrence: US)
  Receive Date: 20190308
  Receipt Date: 20190308
  Transmission Date: 20190418
  Serious: No
  Sender: FDA-Public Use
  Company Number: US-IPSEN BIOPHARMACEUTICALS, INC.-2019-03195

PATIENT
  Age: 42 Year
  Sex: Female
  Weight: 88.4 kg

DRUGS (8)
  1. VITAMIN B [Concomitant]
     Active Substance: VITAMIN B
  2. CALCIUM [Concomitant]
     Active Substance: CALCIUM
  3. VITAMIN C [Concomitant]
     Active Substance: ASCORBIC ACID
  4. SOMATULINE DEPOT [Suspect]
     Active Substance: LANREOTIDE ACETATE
     Indication: OFF LABEL USE
  5. VITAMIN D [Concomitant]
     Active Substance: CHOLECALCIFEROL
  6. PROBIOTICS [Concomitant]
     Active Substance: PROBIOTICS NOS
  7. SOMATULINE DEPOT [Suspect]
     Active Substance: LANREOTIDE ACETATE
     Indication: PITUITARY TUMOUR
     Dosage: SITE: BACK OF THE HIP RIGHT ABOVE THE REAR END ROTATING BETWEEN HER RIGHT AND LEFT SIDE, EVERY 4 TO
     Route: 058
     Dates: start: 20181016, end: 201812
  8. MULTIVITAMINS [Concomitant]
     Active Substance: VITAMINS

REACTIONS (6)
  - Vomiting [Not Recovered/Not Resolved]
  - Diarrhoea [Not Recovered/Not Resolved]
  - Abdominal pain upper [Not Recovered/Not Resolved]
  - Drug ineffective for unapproved indication [Unknown]
  - Flatulence [Not Recovered/Not Resolved]
  - Off label use [Unknown]

NARRATIVE: CASE EVENT DATE: 20181016
